FAERS Safety Report 6690774-1 (Version None)
Quarter: 2010Q2

REPORT INFORMATION
  Report Type: 
  Country: None (occurrence: None)
  Receive Date: 20100421
  Receipt Date: 20100414
  Transmission Date: 20101027
  Serious: Yes (Hospitalization)
  Sender: FDA-Public Use
  Company Number: US-CEPHALON-2010000435

PATIENT
  Sex: Male

DRUGS (7)
  1. NUVIGIL [Suspect]
     Indication: ASTHENIA
     Route: 048
     Dates: start: 20091202, end: 20100106
  2. OXYCONTIN [Concomitant]
     Indication: NEURALGIA
     Route: 048
     Dates: start: 20090601
  3. TOPAMAX [Concomitant]
     Indication: NEURALGIA
     Route: 048
     Dates: start: 20070101
  4. PAXIL [Concomitant]
     Indication: DEPRESSION
     Route: 048
  5. TRAZODONE [Concomitant]
     Indication: INSOMNIA
     Route: 048
  6. RESTORIL [Concomitant]
     Indication: INSOMNIA
     Route: 048
     Dates: start: 20030101, end: 20091101
  7. SWINE FLU VACCINATION [Concomitant]
     Indication: PROPHYLAXIS
     Route: 030
     Dates: start: 20100104, end: 20100104

REACTIONS (8)
  - BLOOD URINE PRESENT [None]
  - BURNING SENSATION [None]
  - DYSURIA [None]
  - HYPOAESTHESIA [None]
  - OEDEMA GENITAL [None]
  - OEDEMA PERIPHERAL [None]
  - PAIN IN EXTREMITY [None]
  - RENAL DISORDER [None]
